FAERS Safety Report 10440283 (Version 2)
Quarter: 2014Q3

REPORT INFORMATION
  Report Type: Report from Study
  Country: GB (occurrence: GB)
  Receive Date: 20140909
  Receipt Date: 20140910
  Transmission Date: 20150326
  Serious: Yes (Other)
  Sender: FDA-Public Use
  Company Number: GB-ROCHE-1459329

PATIENT
  Sex: Female

DRUGS (1)
  1. HERCEPTIN [Suspect]
     Active Substance: TRASTUZUMAB
     Indication: NEOPLASM MALIGNANT
     Route: 058

REACTIONS (6)
  - Pain in extremity [Unknown]
  - Pain [Unknown]
  - Chest pain [Unknown]
  - Musculoskeletal pain [Unknown]
  - Back pain [Unknown]
  - Injection site reaction [Unknown]
